FAERS Safety Report 8151738-4 (Version None)
Quarter: 2012Q1

REPORT INFORMATION
  Report Type: 
  Country: None (occurrence: None)
  Receive Date: 20120221
  Receipt Date: 20090602
  Transmission Date: 20120608
  Serious: No
  Sender: FDA-Public Use
  Company Number: 2009BI016789

PATIENT
  Age: 49 Year
  Sex: Female

DRUGS (2)
  1. TYSABRI [Suspect]
     Route: 042
     Dates: start: 20061009
  2. TYSABRI [Suspect]
     Indication: MULTIPLE SCLEROSIS
     Route: 042
     Dates: start: 20041223, end: 20050201

REACTIONS (4)
  - BLOOD CHOLESTEROL ABNORMAL [None]
  - URINARY TRACT INFECTION [None]
  - MUSCLE SPASTICITY [None]
  - GAIT DISTURBANCE [None]
